FAERS Safety Report 12680044 (Version 11)
Quarter: 2017Q4

REPORT INFORMATION
  Report Type: Report from Study
  Country: CA (occurrence: CA)
  Receive Date: 20160824
  Receipt Date: 20171219
  Transmission Date: 20180320
  Serious: Yes (Hospitalization)
  Sender: FDA-Public Use
  Company Number: CA-ROCHE-1783443

PATIENT
  Age: 47 Year
  Sex: Female
  Weight: 68.7 kg

DRUGS (32)
  1. NAB-PACLITAXEL [Suspect]
     Active Substance: PACLITAXEL
     Indication: BREAST CANCER METASTATIC
     Dosage: ON 21/JUN/2016, SHE RECEIVED THE MOST RECENT DOSE 100 MG/M2 PRIOR TO THE ONSET OF SYSTEMIC IMMUNE AC
     Route: 042
     Dates: start: 20160414
  2. TYLENOL [Concomitant]
     Active Substance: ACETAMINOPHEN
     Indication: AXILLARY PAIN
     Dosage: EXTRA STRENGTH
     Route: 065
     Dates: start: 20160404, end: 20160901
  3. TYLENOL [Concomitant]
     Active Substance: ACETAMINOPHEN
     Dosage: EXTRA STRENGTH
     Route: 065
     Dates: start: 20160404
  4. HEME IRON POLYPEPTIDE [Concomitant]
     Indication: ANAEMIA PROPHYLAXIS
     Route: 065
     Dates: start: 20160429
  5. FENTANYL. [Concomitant]
     Active Substance: FENTANYL
     Indication: BRONCHOSCOPY
     Route: 065
     Dates: start: 20160816, end: 20160816
  6. ATEZOLIZUMAB. [Suspect]
     Active Substance: ATEZOLIZUMAB
     Indication: BREAST CANCER METASTATIC
     Dosage: ON 21/JUN/2016, SHE RECEIVED THE MOST RECENT DOSE OF 840 MG PRIOR TO THE ONSET OF SYSTEMIC IMMUNE AC
     Route: 042
     Dates: start: 20160414
  7. VENTOLIN [Concomitant]
     Active Substance: ALBUTEROL SULFATE
     Indication: DYSPNOEA
     Route: 065
     Dates: start: 20160806, end: 20160816
  8. LORAZEPAM. [Concomitant]
     Active Substance: LORAZEPAM
     Indication: INSOMNIA
     Route: 065
     Dates: start: 20160701, end: 20161027
  9. MIDAZOLAM [Concomitant]
     Active Substance: MIDAZOLAM HYDROCHLORIDE
     Indication: BRONCHOSCOPY
     Route: 065
     Dates: start: 20160816, end: 20160816
  10. TYLENOL [Concomitant]
     Active Substance: ACETAMINOPHEN
     Route: 065
     Dates: start: 20160806, end: 20160816
  11. KENALOG IN ORABASE [Concomitant]
     Active Substance: TRIAMCINOLONE ACETONIDE
     Indication: DERMATITIS ACNEIFORM
     Route: 065
     Dates: start: 20160602
  12. ZANTAC [Concomitant]
     Active Substance: RANITIDINE HYDROCHLORIDE
     Indication: DYSPEPSIA
     Route: 065
     Dates: start: 20160417
  13. ADVIL [Concomitant]
     Active Substance: IBUPROFEN
     Indication: NECK PAIN
     Route: 065
     Dates: start: 20160624, end: 20160703
  14. VENTOLIN [Concomitant]
     Active Substance: ALBUTEROL SULFATE
     Indication: ASTHMA
     Route: 065
     Dates: start: 1991
  15. DALTEPARIN [Concomitant]
     Active Substance: DALTEPARIN
     Indication: THROMBOSIS PROPHYLAXIS
     Route: 065
     Dates: start: 20160811, end: 20160811
  16. LIDOCAINE. [Concomitant]
     Active Substance: LIDOCAINE
     Indication: BRONCHOSCOPY
     Route: 065
     Dates: start: 20160816, end: 20160816
  17. BENADRYL ALLERGY (CANADA) [Concomitant]
     Indication: DERMATITIS ACNEIFORM
     Route: 065
     Dates: start: 20160705, end: 20160801
  18. TYLENOL [Concomitant]
     Active Substance: ACETAMINOPHEN
     Indication: PYREXIA
     Route: 065
     Dates: start: 20160704, end: 20160704
  19. FLEXERIL [Concomitant]
     Active Substance: CYCLOBENZAPRINE HYDROCHLORIDE
     Indication: NECK PAIN
     Route: 065
     Dates: start: 20160404
  20. REACTINE (CANADA) [Concomitant]
     Active Substance: CETIRIZINE HYDROCHLORIDE
     Indication: SEASONAL ALLERGY
     Route: 065
     Dates: start: 2008
  21. REACTINE (CANADA) [Concomitant]
     Active Substance: CETIRIZINE HYDROCHLORIDE
     Indication: DERMATITIS ACNEIFORM
  22. MELATONIN [Concomitant]
     Active Substance: MELATONIN
     Indication: INSOMNIA
     Route: 065
     Dates: start: 201411, end: 201603
  23. CIPROFLOXACIN. [Concomitant]
     Active Substance: CIPROFLOXACIN
     Indication: URINARY TRACT INFECTION
     Route: 065
     Dates: start: 20160716, end: 20160723
  24. FLEXERIL [Concomitant]
     Active Substance: CYCLOBENZAPRINE HYDROCHLORIDE
     Indication: AXILLARY PAIN
     Route: 065
     Dates: start: 20160404, end: 20160901
  25. REACTINE (CANADA) [Concomitant]
     Active Substance: CETIRIZINE HYDROCHLORIDE
     Indication: ALLERGY TO ANIMAL
  26. STEMETIL [Concomitant]
     Active Substance: PROCHLORPERAZINE MALEATE
     Indication: NAUSEA
     Route: 065
     Dates: start: 20160425, end: 20160820
  27. DALTEPARIN [Concomitant]
     Active Substance: DALTEPARIN
     Route: 065
     Dates: start: 20160814, end: 20160818
  28. NASONEX [Concomitant]
     Active Substance: MOMETASONE FUROATE
     Indication: SEASONAL ALLERGY
     Route: 065
     Dates: start: 2013
  29. RABEPRAZOLE [Concomitant]
     Active Substance: RABEPRAZOLE
     Indication: DYSPEPSIA
     Route: 065
     Dates: start: 20160616, end: 20160813
  30. TYLENOL [Concomitant]
     Active Substance: ACETAMINOPHEN
     Indication: NECK PAIN
     Route: 065
     Dates: start: 20160703, end: 20160703
  31. REACTINE (CANADA) [Concomitant]
     Active Substance: CETIRIZINE HYDROCHLORIDE
     Indication: ALLERGY TO ANIMAL
     Route: 065
     Dates: start: 20160705, end: 20160801
  32. FLOVENT [Concomitant]
     Active Substance: FLUTICASONE PROPIONATE
     Indication: ASTHMA
     Route: 065
     Dates: start: 1992

REACTIONS (1)
  - Systemic immune activation [Recovered/Resolved]

NARRATIVE: CASE EVENT DATE: 20160623
